FAERS Safety Report 6040057-8 (Version None)
Quarter: 2009Q1

REPORT INFORMATION
  Report Type: 
  Country: None (occurrence: None)
  Receive Date: 20090116
  Receipt Date: 20071218
  Transmission Date: 20090719
  Serious: No
  Sender: FDA-Public Use
  Company Number: US-BRISTOL-MYERS SQUIBB COMPANY-13998778

PATIENT
  Age: 30 Year
  Sex: Female

DRUGS (5)
  1. ABILIFY [Suspect]
     Indication: BIPOLAR DISORDER
     Route: 048
     Dates: start: 20070928, end: 20071030
  2. SEROQUEL [Concomitant]
  3. LAMICTAL [Concomitant]
  4. EFFEXOR XR [Concomitant]
  5. LORAZEPAM [Concomitant]

REACTIONS (1)
  - NEUTROPENIA [None]
